FAERS Safety Report 7376308-7 (Version None)
Quarter: 2011Q1

REPORT INFORMATION
  Report Type: 
  Country: None (occurrence: None)
  Receive Date: 20110325
  Receipt Date: 20110321
  Transmission Date: 20110831
  Serious: Yes (Other)
  Sender: FDA-Public Use
  Company Number: ES-ABBOTT-11P-144-0713169-00

PATIENT
  Age: 4 Day
  Sex: Female
  Weight: 2 kg

DRUGS (2)
  1. SEVOFLURANE [Suspect]
     Indication: ANORECTAL OPERATION
     Route: 055
     Dates: start: 20110321, end: 20110321
  2. CHIROCAINE [Suspect]
     Indication: POSTOPERATIVE ANALGESIA
     Dosage: INITIAL BOLUS OF 2.5 MG/KG. AND POSTERIOR PERFUSION OF 0.2 MG/KG/DAY
     Route: 008
     Dates: start: 20110321, end: 20110321

REACTIONS (3)
  - ELECTROENCEPHALOGRAM ABNORMAL [None]
  - HYPERTONIA [None]
  - HYPERVENTILATION [None]
